FAERS Safety Report 17367398 (Version 1)
Quarter: 2020Q1

REPORT INFORMATION
  Report Type: Spontaneous
  Country: US (occurrence: US)
  Receive Date: 20200204
  Receipt Date: 20200204
  Transmission Date: 20200409
  Serious: Yes (Other)
  Sender: FDA-Public Use
  Company Number: US-ASTRAZENECA-2020SE17444

PATIENT
  Sex: Male

DRUGS (1)
  1. SYNAGIS [Suspect]
     Active Substance: PALIVIZUMAB
     Route: 030
     Dates: start: 20191220

REACTIONS (5)
  - Dependence on respirator [Unknown]
  - Hypercapnia [Unknown]
  - Hypoxia [Unknown]
  - Complication associated with device [Unknown]
  - Chronic respiratory failure [Unknown]
